FAERS Safety Report 6766838-0 (Version None)
Quarter: 2010Q2

REPORT INFORMATION
  Report Type: 
  Country: None (occurrence: None)
  Receive Date: 20100611
  Receipt Date: 20100601
  Transmission Date: 20101027
  Serious: Yes (Other)
  Sender: FDA-Public Use
  Company Number: BE-ABBOTT-10P-013-0648540-00

PATIENT
  Age: 80 Year
  Sex: Female

DRUGS (4)
  1. HUMIRA [Suspect]
     Indication: PSORIASIS
     Dates: start: 20100101
  2. CORUNO [Concomitant]
     Indication: HYPERTENSION
  3. EMCONCOR [Concomitant]
     Indication: HYPERTENSION
  4. NITROGLYCERIN [Concomitant]
     Indication: CARDIAC DISORDER

REACTIONS (3)
  - INFARCTION [None]
  - OEDEMA PERIPHERAL [None]
  - SKIN ULCER [None]
